FAERS Safety Report 4715071-2 (Version None)
Quarter: 2005Q3

REPORT INFORMATION
  Report Type: 
  Country: None (occurrence: None)
  Receive Date: 20050715
  Receipt Date: 20050705
  Transmission Date: 20060218
  Serious: Yes (Other)
  Sender: FDA-Public Use
  Company Number: AU-BRISTOL-MYERS SQUIBB COMPANY-13030093

PATIENT
  Age: 33 Year
  Sex: Female

DRUGS (3)
  1. EFAVIRENZ [Suspect]
  2. ZIAGEN [Concomitant]
  3. LAMIVUDINE [Concomitant]

REACTIONS (2)
  - ANGIONEUROTIC OEDEMA [None]
  - URTICARIA [None]
